FAERS Safety Report 5212989-1 (Version None)
Quarter: 2007Q1

REPORT INFORMATION
  Report Type: 
  Country: None (occurrence: None)
  Receive Date: 20070117
  Receipt Date: 20070117
  Transmission Date: 20070707
  Serious: No
  Sender: FDA-Public Use
  Company Number: None

PATIENT
  Sex: Male
  Weight: 102.0593 kg

DRUGS (1)
  1. SERALINE 100 MG TEVA [Suspect]
     Indication: PANIC ATTACK
     Dosage: ONE TABLET  DAILY
     Dates: start: 20060901, end: 20061231

REACTIONS (7)
  - ADVERSE DRUG REACTION [None]
  - ANXIETY [None]
  - DEPRESSION [None]
  - ECONOMIC PROBLEM [None]
  - NERVOUSNESS [None]
  - PHARMACEUTICAL PRODUCT COMPLAINT [None]
  - VOMITING [None]
